FAERS Safety Report 5107042-1 (Version None)
Quarter: 2006Q3

REPORT INFORMATION
  Report Type: 
  Country: None (occurrence: None)
  Receive Date: 20060913
  Receipt Date: 20060907
  Transmission Date: 20061208
  Serious: Yes (Other)
  Sender: FDA-Public Use
  Company Number: 147417USA

PATIENT
  Age: 29 Year
  Sex: Male

DRUGS (5)
  1. MERCAPTOPURINE [Suspect]
     Indication: PROCTITIS ULCERATIVE
  2. CYCLOSPORINE [Suspect]
     Indication: PROCTITIS ULCERATIVE
  3. PREDNISONE [Suspect]
     Indication: PROCTITIS ULCERATIVE
  4. REMICADE [Suspect]
     Indication: PROCTITIS ULCERATIVE
  5. STEROID [Concomitant]

REACTIONS (13)
  - DIARRHOEA [None]
  - DIFFUSE LARGE B-CELL LYMPHOMA [None]
  - DRUG INEFFECTIVE [None]
  - EPSTEIN-BARR VIRUS ANTIGEN POSITIVE [None]
  - GENERAL PHYSICAL HEALTH DETERIORATION [None]
  - IRRITABLE BOWEL SYNDROME [None]
  - METASTASES TO BONE [None]
  - METASTASES TO LYMPH NODES [None]
  - METASTASES TO THE MEDIASTINUM [None]
  - NON-HODGKIN'S LYMPHOMA [None]
  - NONSPECIFIC REACTION [None]
  - POUCHITIS [None]
  - WEIGHT DECREASED [None]
